FAERS Safety Report 25997598 (Version 1)
Quarter: 2025Q4

REPORT INFORMATION
  Report Type: Spontaneous
  Country: US (occurrence: US)
  Receive Date: 20251104
  Receipt Date: 20251104
  Transmission Date: 20260118
  Serious: Yes (Other)
  Sender: JOHNSON AND JOHNSON
  Company Number: US-JNJFOC-20251036536

PATIENT

DRUGS (2)
  1. EVITHROM [Suspect]
     Active Substance: HUMAN THROMBIN
     Indication: Hepatectomy
     Route: 061
  2. GELATIN [Concomitant]
     Active Substance: GELATIN
     Indication: Product used for unknown indication

REACTIONS (4)
  - Haemorrhage [Unknown]
  - Venous injury [Unknown]
  - Device malfunction [Unknown]
  - Device use issue [Unknown]

NARRATIVE: CASE EVENT DATE: 20250101
